FAERS Safety Report 8518306-3 (Version None)
Quarter: 2012Q3

REPORT INFORMATION
  Report Type: 
  Country: None (occurrence: None)
  Receive Date: 20120718
  Receipt Date: 20120118
  Transmission Date: 20120928
  Serious: No
  Sender: FDA-Public Use
  Company Number: US-BRISTOL-MYERS SQUIBB COMPANY-16356487

PATIENT
  Age: 71 Year
  Sex: Female
  Weight: 63 kg

DRUGS (3)
  1. WARFARIN SODIUM [Suspect]
     Dosage: 4-6 MONTHS AGO
  2. BENAZEPRIL HYDROCHLORIDE [Concomitant]
  3. AMLODIPINE [Concomitant]

REACTIONS (1)
  - ADVERSE EVENT [None]
